FAERS Safety Report 16274404 (Version 1)
Quarter: 2019Q2

REPORT INFORMATION
  Report Type: Spontaneous
  Country: ES (occurrence: ES)
  Receive Date: 20190504
  Receipt Date: 20190504
  Transmission Date: 20190711
  Serious: Yes (Life-Threatening, Other)
  Sender: FDA-Public Use
  Company Number: ES-AUROBINDO-AUR-APL-2019-021415

PATIENT

DRUGS (5)
  1. ETANERCEPT [Suspect]
     Active Substance: ETANERCEPT
     Indication: PSORIATIC ARTHROPATHY
     Dosage: UNK
     Route: 065
  2. PANTOPRAZOLE [Suspect]
     Active Substance: PANTOPRAZOLE
     Indication: PSORIATIC ARTHROPATHY
     Dosage: UNK
     Route: 065
  3. NEOTIGASON [Concomitant]
     Active Substance: ACITRETIN
     Indication: PSORIATIC ARTHROPATHY
     Dosage: UNK
     Route: 065
  4. NAPROXEN SODIUM. [Suspect]
     Active Substance: NAPROXEN SODIUM
     Indication: PSORIATIC ARTHROPATHY
     Dosage: UNK
     Route: 065
  5. AZITHROMYCIN FILM-COATED TABLETS [Suspect]
     Active Substance: AZITHROMYCIN ANHYDROUS
     Indication: PRODUCT USED FOR UNKNOWN INDICATION
     Dosage: UNK
     Route: 065

REACTIONS (3)
  - Stevens-Johnson syndrome [Unknown]
  - Influenza like illness [Unknown]
  - Product use in unapproved indication [Unknown]
